FAERS Safety Report 4986109-2 (Version None)
Quarter: 2006Q1

REPORT INFORMATION
  Report Type: 
  Country: None (occurrence: None)
  Receive Date: 20060309
  Receipt Date: 20050801
  Transmission Date: 20060701
  Serious: Yes (Other)
  Sender: FDA-Public Use
  Company Number: 412733

PATIENT
  Age: 18 Year
  Sex: Male
  Weight: 77.1 kg

DRUGS (2)
  1. ACCUTANE [Suspect]
     Indication: ACNE
     Dosage: 40 MG 2 PER DAY ORAL
     Route: 048
     Dates: start: 20010715, end: 20011115
  2. TETRACYCLINE [Concomitant]

REACTIONS (6)
  - BLOOD TRIGLYCERIDES INCREASED [None]
  - DIARRHOEA [None]
  - HEADACHE [None]
  - LIBIDO INCREASED [None]
  - PSYCHOTIC DISORDER [None]
  - THINKING ABNORMAL [None]
